FAERS Safety Report 9645547 (Version 1)
Quarter: 2013Q4

REPORT INFORMATION
  Report Type: Spontaneous
  Country: DE (occurrence: DE)
  Receive Date: 20131025
  Receipt Date: 20131025
  Transmission Date: 20140711
  Serious: Yes (Hospitalization, Disabling, Congenital Anomaly)
  Sender: FDA-Public Use
  Company Number: DE-SA-2013SA105756

PATIENT
  Sex: Female
  Weight: 1.95 kg

DRUGS (12)
  1. PREDNISOLON [Suspect]
     Indication: IMMUNE THROMBOCYTOPENIC PURPURA
     Route: 064
  2. PREDNISOLON [Suspect]
     Indication: IMMUNE THROMBOCYTOPENIC PURPURA
     Route: 064
  3. PREDNISOLON [Suspect]
     Indication: IMMUNE THROMBOCYTOPENIC PURPURA
     Dosage: FROM 40 MG DAILY REDUCED TO 20 MG DAILY
     Route: 064
  4. PREDNISOLON [Suspect]
     Indication: IMMUNE THROMBOCYTOPENIC PURPURA
     Route: 064
  5. FUROSEMID [Suspect]
     Indication: GLOMERULONEPHRITIS
     Route: 064
  6. FLUVASTATIN [Suspect]
     Indication: HYPERCHOLESTEROLAEMIA
     Route: 064
  7. RAMIPRIL [Suspect]
     Indication: GLOMERULONEPHRITIS
     Route: 064
  8. PROGRAF [Suspect]
     Indication: NEPHROTIC SYNDROME
     Route: 064
  9. TORASEMIDE [Suspect]
     Indication: GLOMERULONEPHRITIS
     Route: 064
  10. OMEPRAZOLE [Concomitant]
     Indication: GASTRITIS PROPHYLAXIS
     Route: 064
  11. IDEOS [Concomitant]
     Indication: OSTEOPOROSIS PROPHYLAXIS
     Dosage: 1 DF = 500 MG / 10 MCG
     Route: 064
  12. FOLIC ACID [Concomitant]
     Indication: PROPHYLAXIS OF NEURAL TUBE DEFECT
     Route: 064

REACTIONS (16)
  - Congenital musculoskeletal anomaly [Unknown]
  - Developmental hip dysplasia [Unknown]
  - Limb malformation [Unknown]
  - Limb malformation [Unknown]
  - Developmental hip dysplasia [Unknown]
  - Congenital anomaly [Unknown]
  - Congenital anomaly [Unknown]
  - Limb malformation [Unknown]
  - Dysmorphism [Unknown]
  - Foetal exposure during pregnancy [Unknown]
  - Talipes [Unknown]
  - Cleft palate [Unknown]
  - Patent ductus arteriosus [Unknown]
  - Atrial septal defect [Unknown]
  - Premature baby [Recovering/Resolving]
  - Limb reduction defect [Not Recovered/Not Resolved]
